FAERS Safety Report 4421827-6 (Version None)
Quarter: 2004Q3

REPORT INFORMATION
  Report Type: 
  Country: None (occurrence: None)
  Receive Date: 20040806
  Receipt Date: 20040723
  Transmission Date: 20050211
  Serious: Yes (Hospitalization)
  Sender: FDA-Public Use
  Company Number: 2004-BP-04789BP

PATIENT
  Age: 82 Year
  Sex: Male
  Weight: 114.3 kg

DRUGS (5)
  1. FLOMAX [Suspect]
     Indication: BENIGN PROSTATIC HYPERPLASIA
     Dosage: 0.4 MG (0.4 MG, 1 QD), PO
     Route: 048
     Dates: start: 20030601, end: 20030901
  2. ZAROXOLYN [Concomitant]
  3. ALDACTONE [Concomitant]
  4. ALLOPURINOL [Concomitant]
  5. LIPITOR [Concomitant]

REACTIONS (4)
  - DYSPNOEA [None]
  - HAEMANGIOMA [None]
  - NASAL POLYPS [None]
  - RHINITIS [None]
